FAERS Safety Report 19744793 (Version 1)
Quarter: 2021Q3

REPORT INFORMATION
  Report Type: Spontaneous
  Country: US (occurrence: US)
  Receive Date: 20210825
  Receipt Date: 20210825
  Transmission Date: 20211014
  Serious: No
  Sender: FDA-Public Use
  Company Number: US-009507513-2108USA005320

PATIENT

DRUGS (2)
  1. DIFICID [Suspect]
     Active Substance: FIDAXOMICIN
     Dosage: 4 DOSES FIRST DAY
     Route: 048
     Dates: start: 20210816, end: 20210816
  2. DIFICID [Suspect]
     Active Substance: FIDAXOMICIN
     Dosage: 2 DOSES SECOND DAY
     Route: 048
     Dates: start: 20210817, end: 20210817

REACTIONS (2)
  - Intentional product misuse [Unknown]
  - No adverse event [Unknown]

NARRATIVE: CASE EVENT DATE: 20210816
